FAERS Safety Report 7364593-7 (Version None)
Quarter: 2011Q1

REPORT INFORMATION
  Report Type: 
  Country: None (occurrence: None)
  Receive Date: 20110321
  Receipt Date: 20110311
  Transmission Date: 20110831
  Serious: Yes (Hospitalization)
  Sender: FDA-Public Use
  Company Number: CHPA2011DE03985

PATIENT
  Age: 3 Year
  Sex: Female
  Weight: 17.8 kg

DRUGS (2)
  1. IBUPROFEN [Suspect]
     Indication: PYREXIA
     Dosage: UNK, UNK
     Route: 048
     Dates: start: 20110124
  2. INFECTOCEF [Suspect]
     Indication: TONSILLITIS
     Dosage: UNK, UNK
     Route: 048
     Dates: start: 20110201, end: 20110202

REACTIONS (1)
  - OVERLAP SYNDROME [None]
